FAERS Safety Report 18431668 (Version 1)
Quarter: 2020Q4

REPORT INFORMATION
  Report Type: Spontaneous
  Country: US (occurrence: US)
  Receive Date: 20201027
  Receipt Date: 20201027
  Transmission Date: 20210114
  Serious: Yes (Hospitalization)
  Sender: FDA-Public Use
  Company Number: None

PATIENT
  Age: 77 Year
  Sex: Male

DRUGS (11)
  1. HYDROCO/APAP [Concomitant]
     Active Substance: ACETAMINOPHEN\HYDROCODONE
  2. PHENAZOPYRID [Concomitant]
  3. TAMSULOSIN [Concomitant]
     Active Substance: TAMSULOSIN
  4. FINASTERIDE. [Concomitant]
     Active Substance: FINASTERIDE
  5. VANCOMYCIN [Concomitant]
     Active Substance: VANCOMYCIN
  6. TRAMADOL HCL [Concomitant]
     Active Substance: TRAMADOL HYDROCHLORIDE
  7. TRELEGY ELLIPT [Concomitant]
  8. ESBRIET [Suspect]
     Active Substance: PIRFENIDONE
     Indication: IDIOPATHIC PULMONARY FIBROSIS
     Route: 048
     Dates: start: 20180410
  9. NITROFURANTIN [Concomitant]
     Active Substance: NITROFURANTOIN
  10. CIPROFLOXACN [Concomitant]
     Active Substance: CIPROFLOXACIN
  11. OXYBUTYNIN. [Concomitant]
     Active Substance: OXYBUTYNIN CHLORIDE

REACTIONS (2)
  - Prostatic operation [None]
  - Therapy interrupted [None]

NARRATIVE: CASE EVENT DATE: 20201006
